FAERS Safety Report 25789961 (Version 1)
Quarter: 2025Q3

REPORT INFORMATION
  Report Type: Spontaneous
  Country: US (occurrence: US)
  Receive Date: 20250911
  Receipt Date: 20250911
  Transmission Date: 20251020
  Serious: No
  Sender: Kenvue
  Company Number: US-KENVUE-20250807142

PATIENT
  Sex: Male

DRUGS (10)
  1. IMODIUM [Suspect]
     Active Substance: LOPERAMIDE HYDROCHLORIDE
     Indication: Diarrhoea
     Dosage: UNK, ONCE DAILY
     Route: 065
     Dates: start: 2025
  2. ORENITRAM [Concomitant]
     Active Substance: TREPROSTINIL
     Indication: Pulmonary arterial hypertension
     Dosage: 1.5 MILLIGRAM, THRICE A DAY
     Route: 048
     Dates: start: 2025, end: 202506
  3. ORENITRAM [Concomitant]
     Active Substance: TREPROSTINIL
     Route: 048
     Dates: start: 202503
  4. ORENITRAM [Concomitant]
     Active Substance: TREPROSTINIL
     Dosage: 2.75 MG (1 TABLET OF 0.25 MG AND 2.5 MG EACH), THRICE A DAY
     Route: 048
     Dates: start: 2025
  5. ORENITRAM [Concomitant]
     Active Substance: TREPROSTINIL
     Dosage: 2.625MG (1 TABLET OF 2.5 MG AND 0.125 MG EACH), TID
     Route: 048
     Dates: start: 202507, end: 2025
  6. ORENITRAM [Concomitant]
     Active Substance: TREPROSTINIL
     Dosage: 2.5 MG (1 TABLET OF 2.5 MG), TID
     Route: 048
     Dates: start: 202507, end: 202507
  7. ORENITRAM [Concomitant]
     Active Substance: TREPROSTINIL
     Dosage: 2.25 MG (2 TABLETS OF 1 MG AND 1 TABLET OF 0.25 MG); TID
     Route: 048
     Dates: start: 202507, end: 202507
  8. ORENITRAM [Concomitant]
     Active Substance: TREPROSTINIL
     Dosage: 2 MILLIGRAM, THRICE A DAY
     Route: 048
     Dates: start: 2025, end: 202507
  9. ORENITRAM [Concomitant]
     Active Substance: TREPROSTINIL
     Dosage: 1.875 MILLIGRAM, THRICE A DAY
     Route: 048
     Dates: start: 202506, end: 2025
  10. MACITENTAN\TADALAFIL [Concomitant]
     Active Substance: MACITENTAN\TADALAFIL
     Indication: Product used for unknown indication
     Route: 065

REACTIONS (1)
  - Therapeutic product effect incomplete [Unknown]

NARRATIVE: CASE EVENT DATE: 20250101
